FAERS Safety Report 11230731 (Version 1)
Quarter: 2015Q2

REPORT INFORMATION
  Report Type: Spontaneous
  Country: US (occurrence: None)
  Receive Date: 20150611
  Receipt Date: 20150611
  Transmission Date: 20150821
  Serious: Yes (Death, Hospitalization, Other)
  Sender: FDA-Public Use
  Company Number: 2015AP006414

PATIENT
  Age: 84 Year
  Sex: Female

DRUGS (5)
  1. OLANZAPINE (OLANZAPINE) TABLET [Suspect]
     Active Substance: OLANZAPINE
     Indication: AGITATION
     Route: 048
  2. CITALOPRAM [Suspect]
     Active Substance: CITALOPRAM HYDROBROMIDE
     Indication: PRODUCT USED FOR UNKNOWN INDICATION
  3. MEMANTINE (MEMANTINE) [Suspect]
     Active Substance: MEMANTINE
     Indication: PRODUCT USED FOR UNKNOWN INDICATION
  4. POLYETHYLENE GLYCOL (MACROGOL) [Concomitant]
     Active Substance: POLYETHYLENE GLYCOLS
  5. LORAZEPAM (LORAZEPAM) [Concomitant]
     Active Substance: LORAZEPAM

REACTIONS (1)
  - Seizure [None]
